FAERS Safety Report 5042622-3 (Version None)
Quarter: 2006Q2

REPORT INFORMATION
  Report Type: 
  Country: None (occurrence: None)
  Receive Date: 20060627
  Receipt Date: 20060615
  Transmission Date: 20061013
  Serious: Yes (Hospitalization)
  Sender: FDA-Public Use
  Company Number: 2006068643

PATIENT
  Age: 54 Year
  Sex: Male
  Weight: 129 kg

DRUGS (8)
  1. LYRICA [Suspect]
     Indication: NEURALGIA
     Dosage: 75 MG (75 MG, 1 IN 1 D) ORAL
     Route: 048
     Dates: start: 20060301
  2. ASTRIX (ACETYLSALICYLIC ACID) [Concomitant]
  3. CARDIZEM CD [Concomitant]
  4. DIGOXIN [Concomitant]
  5. HYTRIN [Concomitant]
  6. NEXIUM [Concomitant]
  7. PEPCID [Concomitant]
  8. RAMIPRIL [Concomitant]

REACTIONS (4)
  - ATRIAL FIBRILLATION [None]
  - LIBIDO DECREASED [None]
  - TACHYCARDIA [None]
  - VIRAL INFECTION [None]
